FAERS Safety Report 19988415 (Version 1)
Quarter: 2021Q4

REPORT INFORMATION
  Report Type: Report from Study
  Country: None (occurrence: IT)
  Receive Date: 20211022
  Receipt Date: 20211022
  Transmission Date: 20220303
  Serious: Yes (Death)
  Sender: FDA-Public Use
  Company Number: IT-ABBVIE-21K-083-4130341-00

PATIENT
  Age: 72 Year
  Sex: Female

DRUGS (2)
  1. CARBIDOPA\LEVODOPA [Suspect]
     Active Substance: CARBIDOPA\LEVODOPA
     Indication: Parkinson^s disease
     Dosage: TOTAL DAILY DOSE (MG): 828; PUMP SETTING: MD: 4+3;CR: 2,2 (15H); ED: 2,2
     Route: 050
     Dates: start: 20090326, end: 20211015
  2. CARBIDOPA\LEVODOPA [Suspect]
     Active Substance: CARBIDOPA\LEVODOPA

REACTIONS (2)
  - Respiratory arrest [Fatal]
  - Choking [Fatal]

NARRATIVE: CASE EVENT DATE: 20211015
